FAERS Safety Report 10193650 (Version 1)
Quarter: 2014Q2

REPORT INFORMATION
  Report Type: Spontaneous
  Country: US (occurrence: US)
  Receive Date: 20140524
  Receipt Date: 20140524
  Transmission Date: 20141212
  Serious: No
  Sender: FDA-Public Use
  Company Number: US-SA-2013SA135657

PATIENT
  Age: 79 Year
  Sex: Female

DRUGS (2)
  1. LANTUS SOLOSTAR [Suspect]
     Indication: TYPE 2 DIABETES MELLITUS
     Dosage: TAKEN FROM SEVERAL YEARS?DOSE 26-28 UNITS
     Route: 058
  2. SOLOSTAR [Concomitant]
     Indication: TYPE 2 DIABETES MELLITUS
     Dosage: TAKEN FROM SEVERAL YEARS

REACTIONS (1)
  - Visual impairment [Unknown]
